FAERS Safety Report 14009613 (Version 1)
Quarter: 2017Q3

REPORT INFORMATION
  Report Type: Spontaneous
  Country: US (occurrence: US)
  Receive Date: 20170925
  Receipt Date: 20170925
  Transmission Date: 20171128
  Serious: Yes (Hospitalization, Other)
  Sender: FDA-Public Use
  Company Number: US-ELI_LILLY_AND_COMPANY-US201709002573

PATIENT
  Age: 66 Year
  Sex: Male

DRUGS (4)
  1. VICTOZA [Concomitant]
     Active Substance: LIRAGLUTIDE
     Indication: PRODUCT USED FOR UNKNOWN INDICATION
  2. HUMALOG KWIKPEN [Suspect]
     Active Substance: INSULIN LISPRO
     Indication: PRODUCT USED FOR UNKNOWN INDICATION
     Dosage: 15 U, TID
     Route: 058
     Dates: start: 20170501
  3. HUMALOG KWIKPEN [Suspect]
     Active Substance: INSULIN LISPRO
     Dosage: 15 U, TID
     Route: 058
  4. LANTUS [Concomitant]
     Active Substance: INSULIN GLARGINE
     Indication: PRODUCT USED FOR UNKNOWN INDICATION

REACTIONS (6)
  - Blood glucose decreased [Recovered/Resolved]
  - Sluggishness [Recovered/Resolved]
  - Myocardial infarction [Recovered/Resolved]
  - Hyperhidrosis [Recovered/Resolved]
  - Coronary artery occlusion [Not Recovered/Not Resolved]
  - Drug dose omission [Recovering/Resolving]

NARRATIVE: CASE EVENT DATE: 20170616
